FAERS Safety Report 13587096 (Version 2)
Quarter: 2017Q2

REPORT INFORMATION
  Report Type: Report from Study
  Country: JP (occurrence: JP)
  Receive Date: 20170526
  Receipt Date: 20170618
  Transmission Date: 20170830
  Serious: Yes (Death, Hospitalization)
  Sender: FDA-Public Use
  Company Number: JP-ELI_LILLY_AND_COMPANY-JP201705010789

PATIENT
  Age: 48 Year
  Sex: Male
  Weight: 58 kg

DRUGS (13)
  1. PRASUGREL HYDROCHLORIDE [Suspect]
     Active Substance: PRASUGREL HYDROCHLORIDE
     Indication: ACUTE MYOCARDIAL INFARCTION
     Dosage: 20 MG, DAILY
     Route: 048
     Dates: start: 20160412, end: 20160412
  2. ASPIRIN                            /00002701/ [Suspect]
     Active Substance: ASPIRIN
     Indication: PRODUCT USED FOR UNKNOWN INDICATION
     Dosage: 100 MG, DAILY
     Route: 048
     Dates: start: 20160412, end: 20161226
  3. TRUVADA [Concomitant]
     Active Substance: EMTRICITABINE\TENOFOVIR DISOPROXIL FUMARATE
     Dosage: UNK
     Route: 048
     Dates: start: 20160512, end: 20170406
  4. FAMOTIDINE. [Concomitant]
     Active Substance: FAMOTIDINE
     Dosage: UNK
     Route: 048
     Dates: start: 20160412, end: 20170404
  5. ALLEGRA [Concomitant]
     Active Substance: FEXOFENADINE HYDROCHLORIDE
     Dosage: UNK
     Route: 048
     Dates: start: 20160412, end: 20170404
  6. PRASUGREL HYDROCHLORIDE [Suspect]
     Active Substance: PRASUGREL HYDROCHLORIDE
     Dosage: 3.75 MG, DAILY
     Route: 048
     Dates: start: 20160413, end: 20161226
  7. ASPIRIN                            /00002701/ [Suspect]
     Active Substance: ASPIRIN
     Dosage: 100 MG, DAILY (FOR TREATMENT OF SMALL INTESTINAL HAEMORRHAGE)
     Route: 048
     Dates: start: 20170111, end: 20170402
  8. ATORVASTATIN                       /01326102/ [Concomitant]
     Active Substance: ATORVASTATIN
     Dosage: UNK
     Route: 048
     Dates: start: 20160412, end: 20170404
  9. ARTIST [Concomitant]
     Active Substance: CARVEDILOL
     Dosage: UNK
     Route: 048
     Dates: start: 20160414, end: 20170408
  10. TIVICAY [Concomitant]
     Active Substance: DOLUTEGRAVIR SODIUM
     Dosage: UNK
     Route: 048
     Dates: start: 20160512, end: 20170406
  11. ASPIRIN                            /00002701/ [Suspect]
     Active Substance: ASPIRIN
     Dosage: 100 MG, DAILY (FOR TREATMENT OF CEREBRAL HAEMORRHAGE (VERTEBRAL ARTERY))
     Route: 048
     Dates: start: 20170405, end: 20170408
  12. TRUVADA [Concomitant]
     Active Substance: EMTRICITABINE\TENOFOVIR DISOPROXIL FUMARATE
     Dosage: UNK
     Route: 048
  13. ENALAPRIL MALEATE. [Concomitant]
     Active Substance: ENALAPRIL MALEATE
     Dosage: UNK
     Route: 048
     Dates: start: 20160412, end: 20170404

REACTIONS (4)
  - Cerebral haemorrhage [Fatal]
  - Blood pressure increased [Unknown]
  - Cerebral infarction [Fatal]
  - Small intestinal haemorrhage [Recovered/Resolved]

NARRATIVE: CASE EVENT DATE: 20161226
